FAERS Safety Report 6124010-1 (Version None)
Quarter: 2009Q1

REPORT INFORMATION
  Report Type: 
  Country: None (occurrence: None)
  Receive Date: 20090318
  Receipt Date: 20090318
  Transmission Date: 20090719
  Serious: No
  Sender: FDA-Public Use
  Company Number: None

PATIENT
  Sex: Female
  Weight: 104.55 kg

DRUGS (3)
  1. LISINOPRIL [Suspect]
     Dosage: 20MG TABLET 20 MG QD
     Route: 048
     Dates: start: 20081016, end: 20090317
  2. FLUCONAZOLE [Concomitant]
  3. HYDROCHLOROTHIAZIDE [Concomitant]

REACTIONS (1)
  - COUGH [None]
